FAERS Safety Report 9570211 (Version 3)
Quarter: 2014Q1

REPORT INFORMATION
  Report Type: Spontaneous
  Country: US (occurrence: US)
  Receive Date: 20130930
  Receipt Date: 20140226
  Transmission Date: 20141002
  Serious: No
  Sender: FDA-Public Use
  Company Number: US-AMGEN-USASP2013017718

PATIENT
  Age: 63 Year
  Sex: Female
  Weight: 74.83 kg

DRUGS (10)
  1. ENBREL [Suspect]
     Indication: RHEUMATOID ARTHRITIS
     Dosage: 50 MG, QWK
     Route: 058
     Dates: start: 20110322, end: 20111101
  2. LEVOTHROID [Concomitant]
     Dosage: 100 MUG, UNK
  3. KLONOPIN [Concomitant]
     Dosage: 1 MG, UNK
  4. FIORICET [Concomitant]
     Dosage: UNK
  5. WELLBUTRIN [Concomitant]
     Dosage: 75 MG, UNK
  6. VITAMIN D3 [Concomitant]
     Dosage: 10000 UNIT, UNK
  7. OMEGA 3                            /01334101/ [Concomitant]
     Dosage: 1000 MG, UNK
  8. MULTIVITAMIN                       /07504101/ [Concomitant]
     Dosage: UNK
  9. SIMVASTATIN [Concomitant]
     Dosage: 10 MG, UNK
  10. METOPROLOL TARTRATE [Concomitant]
     Dosage: 50 MG, UNK

REACTIONS (5)
  - Nasopharyngitis [Unknown]
  - Therapeutic response decreased [Unknown]
  - Condition aggravated [Unknown]
  - Influenza [Unknown]
  - Infection [Unknown]
